FAERS Safety Report 22243690 (Version 1)
Quarter: 2023Q2

REPORT INFORMATION
  Report Type: Report from Study
  Country: BR (occurrence: BR)
  Receive Date: 20230424
  Receipt Date: 20230424
  Transmission Date: 20230722
  Serious: Yes (Hospitalization, Other)
  Sender: FDA-Public Use
  Company Number: BR-JNJFOC-20220960425

PATIENT
  Age: 69 Year
  Sex: Female
  Weight: 65 kg

DRUGS (3)
  1. IBRUTINIB [Suspect]
     Active Substance: IBRUTINIB
     Indication: Chronic lymphocytic leukaemia
     Dosage: TIME INTERVAL: 0.33333333 DAYS
     Route: 048
     Dates: start: 20180312
  2. IMBRUVICA [Suspect]
     Active Substance: IBRUTINIB
     Indication: Chronic lymphocytic leukaemia
     Route: 048
  3. IMBRUVICA [Suspect]
     Active Substance: IBRUTINIB
     Indication: Chronic lymphocytic leukaemia
     Route: 048

REACTIONS (17)
  - COVID-19 [Recovered/Resolved with Sequelae]
  - Malaise [Unknown]
  - Diarrhoea [Unknown]
  - Memory impairment [Unknown]
  - Skin cancer [Unknown]
  - Headache [Unknown]
  - Agitation [Unknown]
  - Fatigue [Unknown]
  - Vomiting [Unknown]
  - Fear [Unknown]
  - Labyrinthitis [Unknown]
  - Platelet count decreased [Unknown]
  - Head discomfort [Unknown]
  - Posture abnormal [Unknown]
  - Skin haemorrhage [Unknown]
  - Immunodeficiency [Unknown]
  - Laboratory test abnormal [Unknown]

NARRATIVE: CASE EVENT DATE: 20230213
